FAERS Safety Report 12567453 (Version 1)
Quarter: 2016Q3

REPORT INFORMATION
  Report Type: Spontaneous
  Country: JP (occurrence: JP)
  Receive Date: 20160718
  Receipt Date: 20160718
  Transmission Date: 20161109
  Serious: Yes (Other)
  Sender: FDA-Public Use
  Company Number: JP-PFIZER INC-2016334874

PATIENT
  Age: 83 Year
  Sex: Female

DRUGS (2)
  1. MINEBASE [Concomitant]
  2. TOVIAZ [Suspect]
     Active Substance: FESOTERODINE FUMARATE
     Dosage: UNK
     Route: 048
     Dates: start: 20160705, end: 201607

REACTIONS (3)
  - Feeling hot [Recovering/Resolving]
  - Eye swelling [Recovering/Resolving]
  - Face oedema [Recovering/Resolving]

NARRATIVE: CASE EVENT DATE: 20160706
